FAERS Safety Report 17267133 (Version 1)
Quarter: 2020Q1

REPORT INFORMATION
  Report Type: Report from Study
  Country: CH (occurrence: CH)
  Receive Date: 20200114
  Receipt Date: 20200114
  Transmission Date: 20200409
  Serious: Yes (Other)
  Sender: FDA-Public Use
  Company Number: PHHY2019CH191367

PATIENT
  Sex: Female

DRUGS (3)
  1. BYL719 [Suspect]
     Active Substance: ALPELISIB
     Indication: BREAST CANCER METASTATIC
     Dosage: 300 MG, UNK
     Route: 048
     Dates: start: 20190726, end: 20190730
  2. BYL719 [Suspect]
     Active Substance: ALPELISIB
     Dosage: 250 MG, UNK
     Route: 048
     Dates: start: 20190806, end: 20190813
  3. BYL719 [Suspect]
     Active Substance: ALPELISIB
     Dosage: 200 MG, UNK
     Route: 048
     Dates: start: 20190817

REACTIONS (5)
  - Malignant neoplasm progression [Unknown]
  - Hyperglycaemia [Recovering/Resolving]
  - Breast cancer [Unknown]
  - Weight decreased [Unknown]
  - Thrombocytopenia [Unknown]

NARRATIVE: CASE EVENT DATE: 20190730
